FAERS Safety Report 5321594-8 (Version None)
Quarter: 2007Q2

REPORT INFORMATION
  Report Type: 
  Country: None (occurrence: None)
  Receive Date: 20070510
  Receipt Date: 20070430
  Transmission Date: 20071010
  Serious: Yes (Other)
  Sender: FDA-Public Use
  Company Number: US-ROCHE-495483

PATIENT
  Age: 55 Year
  Sex: Female
  Weight: 53.5 kg

DRUGS (9)
  1. BONIVA [Suspect]
     Indication: OSTEOPENIA
     Route: 048
     Dates: start: 20051001
  2. ANTIVERT [Concomitant]
  3. ZYRTEC [Concomitant]
  4. UNSPECIFIED MEDICATION [Concomitant]
     Dosage: REPORTED AS FEMHART
  5. CALCIUM CHLORIDE [Concomitant]
  6. VITAMIN E [Concomitant]
  7. ZINC [Concomitant]
  8. LIPOIC ACID [Concomitant]
  9. MULTI-VITAMIN [Concomitant]

REACTIONS (1)
  - PRECANCEROUS SKIN LESION [None]
